FAERS Safety Report 21091956 (Version 1)
Quarter: 2022Q3

REPORT INFORMATION
  Report Type: Spontaneous
  Country: US (occurrence: US)
  Receive Date: 20220717
  Receipt Date: 20220717
  Transmission Date: 20221027
  Serious: Yes (Life-Threatening, Other)
  Sender: FDA-Public Use
  Company Number: US-BRACCO-2022US02738

PATIENT
  Age: 20 Year
  Sex: Male

DRUGS (1)
  1. BARIUM SULFATE [Suspect]
     Active Substance: BARIUM SULFATE
     Indication: Magnetic resonance imaging

REACTIONS (5)
  - Aspiration [Recovering/Resolving]
  - Acute respiratory distress syndrome [Recovering/Resolving]
  - Hypoxia [Recovering/Resolving]
  - Shock [Recovering/Resolving]
  - Metabolic acidosis [Recovering/Resolving]
